FAERS Safety Report 5277155-2 (Version None)
Quarter: 2007Q1

REPORT INFORMATION
  Report Type: 
  Country: None (occurrence: None)
  Receive Date: 20061213
  Receipt Date: 20050201
  Transmission Date: 20070707
  Serious: No
  Sender: FDA-Public Use
  Company Number: 2005UW01798

PATIENT
  Age: 60 Year
  Sex: Female

DRUGS (3)
  1. SEROQUEL [Suspect]
     Indication: SCHIZOPHRENIA, PARANOID TYPE
     Dosage: 800 MG HS; PO
     Route: 048
     Dates: start: 20020101
  2. SEROQUEL [Suspect]
     Indication: SCHIZOPHRENIA, PARANOID TYPE
     Dosage: 600 MG HS; PO
     Route: 048
  3. UNSPECIFIED MEDICATIONS [Concomitant]

REACTIONS (1)
  - TARDIVE DYSKINESIA [None]
